FAERS Safety Report 20701646 (Version 1)
Quarter: 2022Q2

REPORT INFORMATION
  Report Type: Spontaneous
  Country: US (occurrence: US)
  Receive Date: 20220412
  Receipt Date: 20220412
  Transmission Date: 20220721
  Serious: Yes (Other)
  Sender: FDA-Public Use
  Company Number: US-NOVARTISPH-NVSC2020US291388

PATIENT
  Age: 1 Year
  Sex: Male
  Weight: 10 kg

DRUGS (2)
  1. KYMRIAH [Suspect]
     Active Substance: TISAGENLECLEUCEL
     Indication: Acute lymphocytic leukaemia recurrent
     Dosage: 2.2 E6 CAR-POS VIABLE T CELLS/KG. TOTAL CELL COUNT 1.02 E7 CELLS/ML
     Route: 042
     Dates: start: 20191008
  2. BLINATUMOMAB [Concomitant]
     Active Substance: BLINATUMOMAB
     Indication: Product used for unknown indication
     Dosage: UNK
     Route: 065

REACTIONS (3)
  - Acute lymphocytic leukaemia recurrent [Not Recovered/Not Resolved]
  - Leukaemia cutis [Unknown]
  - Post-depletion B-cell recovery [Unknown]

NARRATIVE: CASE EVENT DATE: 20200409
